FAERS Safety Report 20506032 (Version 1)
Quarter: 2022Q1

REPORT INFORMATION
  Report Type: Spontaneous
  Country: US (occurrence: US)
  Receive Date: 20220223
  Receipt Date: 20220223
  Transmission Date: 20220423
  Serious: Yes (Life-Threatening, Hospitalization)
  Sender: FDA-Public Use
  Company Number: US-MYLANLABS-2022M1014295

PATIENT
  Age: 26 Year
  Sex: Male

DRUGS (11)
  1. BUPROPION [Suspect]
     Active Substance: BUPROPION
     Indication: Product used for unknown indication
     Dosage: 27 GRAM
     Route: 048
  2. PROPRANOLOL [Suspect]
     Active Substance: PROPRANOLOL HYDROCHLORIDE
     Indication: Product used for unknown indication
     Dosage: UNK
     Route: 048
  3. AMLODIPINE [Suspect]
     Active Substance: AMLODIPINE BESYLATE
     Indication: Product used for unknown indication
     Dosage: UNK
     Route: 048
  4. INSULIN GLARGINE [Suspect]
     Active Substance: INSULIN GLARGINE
     Indication: Cardiogenic shock
     Dosage: UNK
     Route: 065
  5. INSULIN GLARGINE [Suspect]
     Active Substance: INSULIN GLARGINE
     Indication: Vasoplegia syndrome
  6. GLUCAGON [Suspect]
     Active Substance: GLUCAGON
     Indication: Cardiogenic shock
     Dosage: UNK
     Route: 065
  7. GLUCAGON [Suspect]
     Active Substance: GLUCAGON
     Indication: Vasoplegia syndrome
  8. CALCIUM [Suspect]
     Active Substance: CALCIUM
     Indication: Cardiogenic shock
     Dosage: UNK
     Route: 042
  9. CALCIUM [Suspect]
     Active Substance: CALCIUM
     Indication: Vasoplegia syndrome
  10. SODIUM BICARBONATE [Suspect]
     Active Substance: SODIUM BICARBONATE
     Indication: Cardiogenic shock
     Dosage: UNK
     Route: 065
  11. SODIUM BICARBONATE [Suspect]
     Active Substance: SODIUM BICARBONATE
     Indication: Vasoplegia syndrome

REACTIONS (6)
  - Cardiogenic shock [Recovering/Resolving]
  - Vasoplegia syndrome [Recovering/Resolving]
  - Encephalopathy [Recovering/Resolving]
  - Toxicity to various agents [Recovering/Resolving]
  - Intentional overdose [Recovering/Resolving]
  - Drug ineffective [Unknown]
